FAERS Safety Report 26002997 (Version 1)
Quarter: 2025Q4

REPORT INFORMATION
  Report Type: Spontaneous
  Country: US (occurrence: US)
  Receive Date: 20251106
  Receipt Date: 20251106
  Transmission Date: 20260117
  Serious: No
  Sender: CURRAX PHARMACEUTICALS
  Company Number: US-CURRAX PHARMACEUTICALS LLC-US-2025CUR001649

PATIENT
  Age: 36 Year

DRUGS (5)
  1. CONTRAVE [Suspect]
     Active Substance: BUPROPION HYDROCHLORIDE\NALTREXONE HYDROCHLORIDE
     Indication: Weight control
     Dosage: STRENGTH 8/90 MG, 1 TABLET IN THE MORNING AND 1 TABLET IN THE AFTERNOON.
     Route: 065
     Dates: start: 20250719, end: 2025
  2. CONTRAVE [Suspect]
     Active Substance: BUPROPION HYDROCHLORIDE\NALTREXONE HYDROCHLORIDE
     Dosage: STRENGTH 8/90 MG,2 TABLETS IN THE MORNING AND 1 TABLET IN THE AFTERNOON
     Route: 065
     Dates: start: 20250802, end: 202508
  3. SKYRIZI [Concomitant]
     Active Substance: RISANKIZUMAB-RZAA
     Indication: Psoriasis
     Dosage: AN INFECTION EVERY 3 MONTHS
  4. SYNTHROID [Concomitant]
     Active Substance: LEVOTHYROXINE SODIUM
     Indication: Hypothyroidism
     Dosage: UNK
  5. VITAMIN D [Concomitant]
     Active Substance: VITAMIN D NOS
     Indication: Product used for unknown indication
     Dosage: 50000 IU

REACTIONS (3)
  - Rash [Unknown]
  - Urticaria [Unknown]
  - Product use issue [Unknown]

NARRATIVE: CASE EVENT DATE: 20250719
